FAERS Safety Report 10625734 (Version 1)
Quarter: 2014Q4

REPORT INFORMATION
  Report Type: Spontaneous
  Country: US (occurrence: None)
  Receive Date: 20141121
  Receipt Date: 20141121
  Transmission Date: 20150529
  Serious: No
  Sender: FDA-Public Use
  Company Number: 163-10004-14080643

PATIENT
  Age: 72 Year
  Sex: Female

DRUGS (9)
  1. PRILOSEC (OMEPRAZOLE) (UNKNOWN) [Concomitant]
  2. EVISTA (RALOXIFENE HYDROCHLORIDE) (UNKNOWN) [Concomitant]
  3. SINGULAIR (MONTELUKAST SODIUM) (UNKNOWN) [Concomitant]
  4. TRAMADOL HCL (TRAMADOL HYDROCHLORIDE) (UNKNOWN) [Concomitant]
  5. MOBIC (MELOXICAM) (UNKNOWN) [Concomitant]
  6. ALBUTEROL SULFATE (SALBUTAMOL SULFATE) (UNKNOWN) [Concomitant]
  7. PREDNISONE (PREDNISONE) (UNKNOWN) [Concomitant]
     Active Substance: PREDNISONE
  8. LIPITOR [Concomitant]
     Active Substance: ATORVASTATIN CALCIUM
  9. OTEZLA [Suspect]
     Active Substance: APREMILAST
     Indication: PSORIATIC ARTHROPATHY
     Dosage: PO?07/11/2014 - TEMPORARILY INTERRUPTED
     Route: 048
     Dates: start: 20140711

REACTIONS (1)
  - Nausea [None]

NARRATIVE: CASE EVENT DATE: 20140715
